FAERS Safety Report 4846525-6 (Version None)
Quarter: 2005Q4

REPORT INFORMATION
  Report Type: 
  Country: None (occurrence: None)
  Receive Date: 20051206
  Receipt Date: 20020301
  Transmission Date: 20060501
  Serious: Yes (Hospitalization)
  Sender: FDA-Public Use
  Company Number: FI-ABBOTT-02P-055-0188917-02

PATIENT
  Sex: Male

DRUGS (3)
  1. FENOFIBRATE [Suspect]
     Indication: DYSLIPIDAEMIA
     Route: 048
     Dates: start: 19990712, end: 20011201
  2. FENOFIBRATE [Suspect]
     Route: 048
     Dates: start: 20011208
  3. FINASTERIDE [Concomitant]
     Indication: DRUG USE FOR UNKNOWN INDICATION
     Dates: start: 20010901

REACTIONS (2)
  - CHOLECYSTECTOMY [None]
  - INTESTINAL OBSTRUCTION [None]
